FAERS Safety Report 7638810-X (Version None)
Quarter: 2011Q3

REPORT INFORMATION
  Report Type: 
  Country: None (occurrence: None)
  Receive Date: 20110727
  Receipt Date: 20110722
  Transmission Date: 20111222
  Serious: Yes (Death)
  Sender: FDA-Public Use
  Company Number: CO-ROCHE-791769

PATIENT
  Sex: Male

DRUGS (1)
  1. CELLCEPT [Suspect]
     Indication: HEART TRANSPLANT
     Dosage: LAST DOSE: 20 JUL 2011
     Route: 048
     Dates: start: 20100613

REACTIONS (1)
  - ACUTE MYOCARDIAL INFARCTION [None]
